FAERS Safety Report 24641293 (Version 1)
Quarter: 2024Q4

REPORT INFORMATION
  Report Type: Spontaneous
  Country: CH (occurrence: CH)
  Receive Date: 20241120
  Receipt Date: 20241120
  Transmission Date: 20250115
  Serious: Yes (Other)
  Sender: AMGEN
  Company Number: CH-AMGEN-CHESP2024227370

PATIENT
  Age: 70 Year
  Sex: Female

DRUGS (1)
  1. KYPROLIS [Suspect]
     Active Substance: CARFILZOMIB
     Indication: Plasma cell myeloma refractory
     Dosage: 70 MILLIGRAM, QWK
     Route: 065
     Dates: start: 202401, end: 202402

REACTIONS (1)
  - Renal necrosis [Recovering/Resolving]

NARRATIVE: CASE EVENT DATE: 20240101
